FAERS Safety Report 5637593-2 (Version None)
Quarter: 2008Q1

REPORT INFORMATION
  Report Type: 
  Country: None (occurrence: None)
  Receive Date: 20080219
  Receipt Date: 20080205
  Transmission Date: 20080703
  Serious: Yes (Hospitalization)
  Sender: FDA-Public Use
  Company Number: 2008BI000849

PATIENT
  Age: 37 Year
  Sex: Female

DRUGS (5)
  1. AVONEX [Suspect]
     Indication: MULTIPLE SCLEROSIS
     Dosage: 30 UG;QW;IM
     Route: 030
     Dates: start: 20041101
  2. PROVERA [Concomitant]
  3. PROTONIX [Concomitant]
  4. CONCERTA [Concomitant]
  5. AMANTADINE HCL [Concomitant]

REACTIONS (11)
  - AMNESIA [None]
  - APHASIA [None]
  - ATAXIA [None]
  - COGNITIVE DISORDER [None]
  - FATIGUE [None]
  - GAIT SPASTIC [None]
  - IMPAIRED GASTRIC EMPTYING [None]
  - PAIN [None]
  - PNEUMONIA ASPIRATION [None]
  - RELAPSING-REMITTING MULTIPLE SCLEROSIS [None]
  - STRESS [None]
